FAERS Safety Report 25459320 (Version 1)
Quarter: 2025Q2

REPORT INFORMATION
  Report Type: Spontaneous
  Country: US (occurrence: US)
  Receive Date: 20250620
  Receipt Date: 20250620
  Transmission Date: 20250716
  Serious: No
  Sender: CIPLA
  Company Number: US-CIPLA LTD.-2025US07617

PATIENT

DRUGS (1)
  1. ALBUTEROL [Suspect]
     Active Substance: ALBUTEROL
     Indication: Pneumonia
     Dosage: 360 MICROGRAM, BID (2 PUFFS IN THE MORNING AND 2 PUFF IN THE NIGHT)
     Route: 065

REACTIONS (3)
  - Off label use [Unknown]
  - Device malfunction [Unknown]
  - Device delivery system issue [Unknown]
